FAERS Safety Report 16925056 (Version 1)
Quarter: 2019Q4

REPORT INFORMATION
  Report Type: Spontaneous
  Country: US (occurrence: US)
  Receive Date: 20190823
  Receipt Date: 20190823
  Transmission Date: 20200122
  Serious: No
  Sender: FDA-Public Use
  Company Number: None

PATIENT
  Age: 65 Year
  Sex: Male

DRUGS (1)
  1. VOTRIENT [Suspect]
     Active Substance: PAZOPANIB HYDROCHLORIDE
     Route: 048
     Dates: start: 20190429

REACTIONS (8)
  - Eye pain [None]
  - Hair colour changes [None]
  - Nausea [None]
  - Dysgeusia [None]
  - Blood pressure increased [None]
  - Headache [None]
  - Vomiting [None]
  - Skin discolouration [None]

NARRATIVE: CASE EVENT DATE: 20190823
